FAERS Safety Report 24824961 (Version 1)
Quarter: 2025Q1

REPORT INFORMATION
  Report Type: Spontaneous
  Country: CA (occurrence: None)
  Receive Date: 20250109
  Receipt Date: 20250109
  Transmission Date: 20250409
  Serious: Yes (Other)
  Sender: ORION
  Company Number: CA-PFIZER INC-2021077806

PATIENT
  Age: 59 Year
  Sex: Male

DRUGS (11)
  1. METHOTREXATE [Suspect]
     Active Substance: METHOTREXATE
     Indication: Product used for unknown indication
     Dates: start: 2016, end: 2018
  2. ENBREL [Concomitant]
     Active Substance: ETANERCEPT
     Dosage: UNSPECIFIED FREQUENCY
     Dates: start: 201501, end: 2017
  3. TYLENOL [Concomitant]
     Active Substance: ACETAMINOPHEN
  4. CIMZIA [Concomitant]
     Active Substance: CERTOLIZUMAB PEGOL
     Dates: start: 201705, end: 202008
  5. COSENTYX [Concomitant]
     Active Substance: SECUKINUMAB
     Dates: start: 2017
  6. HUMIRA [Concomitant]
     Active Substance: ADALIMUMAB
  7. LEFLUNOMIDE [Concomitant]
     Active Substance: LEFLUNOMIDE
     Dates: start: 2011, end: 201611
  8. ORENCIA [Concomitant]
     Active Substance: ABATACEPT
  9. REMICADE [Concomitant]
     Active Substance: INFLIXIMAB
  10. SIMPONI [Concomitant]
     Active Substance: GOLIMUMAB
  11. STELARA [Concomitant]
     Active Substance: USTEKINUMAB

REACTIONS (2)
  - Vomiting [Unknown]
  - Drug intolerance [Unknown]
